FAERS Safety Report 8993381 (Version 1)
Quarter: 2013Q1

REPORT INFORMATION
  Report Type: Spontaneous
  Country: FR (occurrence: FR)
  Receive Date: 20130102
  Receipt Date: 20130102
  Transmission Date: 20140127
  Serious: Yes (Other)
  Sender: FDA-Public Use
  Company Number: FR-PFIZER INC-2012331763

PATIENT
  Age: 40 Year
  Sex: Female

DRUGS (2)
  1. ADVIL [Suspect]
     Indication: TOOTH INFECTION
     Dosage: 400 MG, SINGLE
     Route: 048
     Dates: start: 20120831, end: 20120831
  2. AMOXICILLIN [Suspect]
     Indication: TOOTH INFECTION
     Dosage: 1 G, SINGLE
     Route: 048
     Dates: start: 20120831, end: 20120831

REACTIONS (3)
  - Face oedema [Recovered/Resolved]
  - Urticaria [Recovered/Resolved]
  - Pruritus [Recovered/Resolved]
